FAERS Safety Report 7219761-1 (Version None)
Quarter: 2011Q1

REPORT INFORMATION
  Report Type: 
  Country: None (occurrence: None)
  Receive Date: 20110103
  Receipt Date: 20101201
  Transmission Date: 20110831
  Serious: Yes (Disabling)
  Sender: FDA-Public Use
  Company Number: PCF.12110.REW.5F

PATIENT
  Sex: Male

DRUGS (2)
  1. FLUOROURACIL [Suspect]
     Indication: ACTINIC KERATOSIS
     Dosage: TWICE DAILY TOPICAL
     Route: 061
     Dates: start: 20100930, end: 20101013
  2. FLUOROURACIL [Suspect]
     Indication: BASAL CELL CARCINOMA
     Dosage: TWICE DAILY TOPICAL
     Route: 061
     Dates: start: 20100930, end: 20101013

REACTIONS (3)
  - ERYTHEMA [None]
  - DISCOMFORT [None]
  - PAIN [None]
